FAERS Safety Report 6689370-1 (Version None)
Quarter: 2010Q2

REPORT INFORMATION
  Report Type: 
  Country: None (occurrence: None)
  Receive Date: 20100419
  Receipt Date: 20100419
  Transmission Date: 20101027
  Serious: Yes (Life-Threatening, Hospitalization)
  Sender: FDA-Public Use
  Company Number: None

PATIENT
  Age: 68 Year
  Sex: Male
  Weight: 71.4 kg

DRUGS (8)
  1. RITUXIMAB 375 MG/M2 GENENTECH BIO ONCOLOGY [Suspect]
     Indication: POSTOPERATIVE CARE
     Dosage: 700 MG IV
     Route: 042
     Dates: start: 20100308, end: 20100308
  2. RITUXIMAB 375 MG/M2 GENENTECH BIO ONCOLOGY [Suspect]
     Indication: PREOPERATIVE CARE
     Dosage: 700 MG IV
     Route: 042
     Dates: start: 20100308, end: 20100308
  3. RITUXIMAB 375 MG/M2 GENENTECH BIO ONCOLOGY [Suspect]
     Indication: POSTOPERATIVE CARE
     Dosage: 700 MG IV
     Route: 042
     Dates: start: 20100406, end: 20100427
  4. RITUXIMAB 375 MG/M2 GENENTECH BIO ONCOLOGY [Suspect]
     Indication: PREOPERATIVE CARE
     Dosage: 700 MG IV
     Route: 042
     Dates: start: 20100406, end: 20100427
  5. CYCLOPHOSPHAMIDE [Concomitant]
  6. FLUDARABINE [Concomitant]
  7. METHOTREXATE [Concomitant]
  8. FILGRASTIM [Concomitant]

REACTIONS (1)
  - PYREXIA [None]
